FAERS Safety Report 11755666 (Version 2)
Quarter: 2015Q4

REPORT INFORMATION
  Report Type: Spontaneous
  Country: IT (occurrence: IT)
  Receive Date: 20151119
  Receipt Date: 20151125
  Transmission Date: 20160304
  Serious: Yes (Hospitalization)
  Sender: FDA-Public Use
  Company Number: PHHY2015IT149965

PATIENT
  Age: 62 Year
  Sex: Male

DRUGS (4)
  1. DICLOFENAC [Suspect]
     Active Substance: DICLOFENAC
     Indication: BACK PAIN
     Dosage: 1 DF, QD
     Route: 030
     Dates: start: 20151023, end: 20151027
  2. ASCRIPTIN [Suspect]
     Active Substance: ASPIRIN
     Indication: THROMBOSIS PROPHYLAXIS
     Dosage: 1 DF, QD
     Route: 048
     Dates: start: 20150101, end: 20151027
  3. MUSCORIL [Concomitant]
     Active Substance: THIOCOLCHICOSIDE
     Indication: PRODUCT USED FOR UNKNOWN INDICATION
     Route: 030
  4. CRESTOR [Concomitant]
     Active Substance: ROSUVASTATIN CALCIUM
     Indication: PRODUCT USED FOR UNKNOWN INDICATION
     Route: 048

REACTIONS (10)
  - Faeces discoloured [Unknown]
  - Asthenia [Unknown]
  - Malaise [Unknown]
  - Loss of consciousness [Unknown]
  - Anaemia [Unknown]
  - Diarrhoea [Unknown]
  - Vomiting [Unknown]
  - Head injury [Unknown]
  - Dizziness [Unknown]
  - Gastric haemorrhage [Unknown]

NARRATIVE: CASE EVENT DATE: 20151027
